FAERS Safety Report 18819912 (Version 1)
Quarter: 2021Q1

REPORT INFORMATION
  Report Type: Spontaneous
  Country: NL (occurrence: NL)
  Receive Date: 20210202
  Receipt Date: 20210202
  Transmission Date: 20210419
  Serious: Yes (Other)
  Sender: FDA-Public Use
  Company Number: NL-TEVA-2021-NL-1874234

PATIENT
  Age: 57 Year
  Sex: Male
  Weight: 75 kg

DRUGS (3)
  1. PANTOPRAZOL TABLET MSR 20MG / BRAND NAME NOT SPECIFIED [Suspect]
     Active Substance: PANTOPRAZOLE
     Indication: DYSPEPSIA
     Dosage: 20 MILLIGRAM DAILY;
     Dates: start: 201908, end: 20210107
  2. TACROLIMUS CAPSULE 5MG / PROGRAFT CAPSULE 5MG [Concomitant]
     Dosage: 3 MILLIGRAM DAILY;  THERAPY START DATE AND END DATE : ASKED BUT UNKNOWN
  3. MYCOFENOLAAT MOFETIL TABLET 500MG / CELLCEPT TABLET 500MG [Concomitant]
     Dosage: THERAPY START DATE AND END DATE : ASKED BUT UNKNOWN

REACTIONS (2)
  - Transplant dysfunction [Not Recovered/Not Resolved]
  - Hypertension [Not Recovered/Not Resolved]

NARRATIVE: CASE EVENT DATE: 202006
